FAERS Safety Report 5587191-4 (Version None)
Quarter: 2008Q1

REPORT INFORMATION
  Report Type: 
  Country: None (occurrence: None)
  Receive Date: 20080110
  Receipt Date: 20080107
  Transmission Date: 20080703
  Serious: Yes (Death)
  Sender: FDA-Public Use
  Company Number: PHBS2007BR20638

PATIENT
  Age: 4 Week
  Sex: Male

DRUGS (11)
  1. SANDOSTATIN [Suspect]
     Indication: INSULINOMA
     Dosage: 0.03 MG, Q8H
     Route: 058
     Dates: start: 20071024
  2. GLUCOSE + SODIUM CHLORIDE SOLUTION [Concomitant]
     Route: 042
  3. POTASSIUM CHLORIDE [Concomitant]
     Route: 042
  4. CALCIUM GLUCONATE [Concomitant]
     Route: 042
  5. VANCOMYCIN [Concomitant]
     Dosage: 50 MG, Q8H
     Route: 042
  6. FUROSEMIDE [Concomitant]
     Dosage: 3 MG, Q12H
     Route: 048
  7. PROPRANOLOL [Concomitant]
     Dosage: 1.5 MG, Q12H
     Route: 042
  8. CEFEPIME [Concomitant]
     Dosage: 175 MG, Q8H
     Route: 042
  9. DOPAMINE HCL [Concomitant]
     Dosage: 25 MG/D
  10. FENTANYL [Concomitant]
     Dosage: 165 UG/D
  11. RANITIDINE [Concomitant]
     Dosage: 2.5 MG, Q8H
     Route: 042

REACTIONS (1)
  - DEATH NEONATAL [None]
